FAERS Safety Report 8115260-3 (Version None)
Quarter: 2012Q1

REPORT INFORMATION
  Report Type: 
  Country: None (occurrence: None)
  Receive Date: 20120206
  Receipt Date: 20120131
  Transmission Date: 20120608
  Serious: Yes (Death, Life-Threatening, Hospitalization, Other)
  Sender: FDA-Public Use
  Company Number: US-CELGENEUS-087-50794-11070229

PATIENT
  Sex: Female
  Weight: 49 kg

DRUGS (2)
  1. RABEPRAZOLE SODIUM [Concomitant]
     Route: 065
     Dates: start: 20110615, end: 20111007
  2. VIDAZA [Suspect]
     Indication: MYELODYSPLASTIC SYNDROME
     Dosage: 100 MILLIGRAM
     Route: 041
     Dates: start: 20110621, end: 20110624

REACTIONS (8)
  - PNEUMONIA [None]
  - SUBCUTANEOUS ABSCESS [None]
  - FEBRILE NEUTROPENIA [None]
  - PLATELET COUNT DECREASED [None]
  - INJECTION SITE VESICLES [None]
  - SEPSIS [None]
  - WHITE BLOOD CELL COUNT DECREASED [None]
  - RED BLOOD CELL COUNT DECREASED [None]
